FAERS Safety Report 25892002 (Version 1)
Quarter: 2025Q4

REPORT INFORMATION
  Report Type: Spontaneous
  Country: BR (occurrence: BR)
  Receive Date: 20251007
  Receipt Date: 20251007
  Transmission Date: 20260118
  Serious: Yes (Other)
  Sender: TAKEDA
  Company Number: BR-TAKEDA-2025TUS086103

PATIENT
  Age: 37 Year
  Sex: Male

DRUGS (11)
  1. LISDEXAMFETAMINE DIMESYLATE [Suspect]
     Active Substance: LISDEXAMFETAMINE DIMESYLATE
     Indication: Mixed anxiety and depressive disorder
     Dosage: UNK
  2. VENLAFAXINE HYDROCHLORIDE [Suspect]
     Active Substance: VENLAFAXINE HYDROCHLORIDE
     Indication: Mixed anxiety and depressive disorder
     Dosage: UNK
  3. FLUOXETINE [Suspect]
     Active Substance: FLUOXETINE HYDROCHLORIDE
     Indication: Mixed anxiety and depressive disorder
     Dosage: UNK
  4. Patz [Concomitant]
     Indication: Insomnia
     Dosage: UNK UNK, QD
  5. Patz [Concomitant]
     Dosage: 25 MILLIGRAM, QD
  6. ACETAMINOPHEN\CAFFEINE\CARISOPRODOL\DICLOFENAC SODIUM [Concomitant]
     Active Substance: ACETAMINOPHEN\CAFFEINE\CARISOPRODOL\DICLOFENAC SODIUM
     Indication: Arthralgia
     Dosage: UNK
  7. ACETAMINOPHEN\CAFFEINE\CARISOPRODOL\DICLOFENAC SODIUM [Concomitant]
     Active Substance: ACETAMINOPHEN\CAFFEINE\CARISOPRODOL\DICLOFENAC SODIUM
     Indication: Myalgia
  8. CANNABIDIOL\HERBALS [Concomitant]
     Active Substance: CANNABIDIOL\HERBALS
     Indication: Mixed anxiety and depressive disorder
     Dosage: 2 GTT DROPS, QD
  9. CANNABIDIOL\HERBALS [Concomitant]
     Active Substance: CANNABIDIOL\HERBALS
     Indication: Insomnia
     Dosage: 2 GTT DROPS, TID
  10. CANNABIDIOL\HERBALS [Concomitant]
     Active Substance: CANNABIDIOL\HERBALS
     Indication: Pain
     Dosage: 17 GTT DROPS, QD
  11. CANNABIS SATIVA FLOWERING TOP [Concomitant]
     Active Substance: CANNABIS SATIVA FLOWERING TOP
     Dosage: 0.4 GRAM, QD

REACTIONS (1)
  - Urinary retention [Unknown]
